FAERS Safety Report 9029632 (Version 2)
Quarter: 2013Q1

REPORT INFORMATION
  Report Type: Spontaneous
  Country: FI (occurrence: FI)
  Receive Date: 20130125
  Receipt Date: 20130220
  Transmission Date: 20140127
  Serious: Yes (Hospitalization)
  Sender: FDA-Public Use
  Company Number: FI-ELI_LILLY_AND_COMPANY-FI201301004708

PATIENT
  Age: 77 Year
  Sex: Male

DRUGS (3)
  1. FORSTEO [Suspect]
     Indication: OSTEOPOROSIS
     Dosage: 20 UG, QD
     Route: 058
     Dates: start: 201101
  2. TREXAN [Concomitant]
     Indication: ARTHRITIS
  3. CALCIUM +VIT D [Concomitant]
     Indication: MEDICAL DIET

REACTIONS (3)
  - Carotid artery occlusion [Recovered/Resolved]
  - Confusional state [Recovered/Resolved]
  - Pain in extremity [Recovered/Resolved]
